FAERS Safety Report 5377739-7 (Version None)
Quarter: 2007Q2

REPORT INFORMATION
  Report Type: 
  Country: None (occurrence: None)
  Receive Date: 20070629
  Receipt Date: 20070625
  Transmission Date: 20071010
  Serious: Yes (Death, Hospitalization)
  Sender: FDA-Public Use
  Company Number: TCI2007A02551

PATIENT
  Age: 74 Year
  Sex: Male

DRUGS (9)
  1. LANSOPRAZOLE [Suspect]
     Indication: GASTRIC ULCER
     Dosage: 30 MG (30 MG, 1 IN 1 D), INTRAVENOUS DRIP
     Route: 041
     Dates: start: 20070525, end: 20070525
  2. SESDEN (TIMEPIDIUM BROMIDE) [Concomitant]
  3. NINOBARUCIN (NISOLDIPINE) [Concomitant]
  4. KETOBUN A (ALLOPURINOL) [Concomitant]
  5. ZENASPIRIN (ACETYLSALICYLIC ACID) [Concomitant]
  6. HIRUBULIN N (NICERGOLINE) [Concomitant]
  7. ARANDAL (ALLYLESTRENOL) [Concomitant]
  8. TAMSULOSIN HCL [Concomitant]
  9. CETILO (RHUBARB/SENNA COMBINED DRUG [Concomitant]

REACTIONS (33)
  - ABNORMAL BEHAVIOUR [None]
  - ACIDOSIS [None]
  - ACUTE MYOCARDIAL INFARCTION [None]
  - ANAEMIA [None]
  - ANAPHYLACTIC SHOCK [None]
  - AORTIC CALCIFICATION [None]
  - AREFLEXIA [None]
  - BACK PAIN [None]
  - BENIGN PROSTATIC HYPERPLASIA [None]
  - BRADYCARDIA [None]
  - CARDIO-RESPIRATORY ARREST [None]
  - CARDIOMEGALY [None]
  - CEREBRAL INFARCTION [None]
  - CEREBRAL ISCHAEMIA [None]
  - CONSTIPATION [None]
  - DISSEMINATED INTRAVASCULAR COAGULATION [None]
  - DYSPHONIA [None]
  - ELECTROMECHANICAL DISSOCIATION [None]
  - FLATULENCE [None]
  - HELICOBACTER PYLORI IDENTIFICATION TEST POSITIVE [None]
  - HEPATIC FUNCTION ABNORMAL [None]
  - HYPOXIC ENCEPHALOPATHY [None]
  - MEAN CELL VOLUME INCREASED [None]
  - MELAENA [None]
  - MULTI-ORGAN FAILURE [None]
  - MYOCARDIAL ISCHAEMIA [None]
  - NO THERAPEUTIC RESPONSE [None]
  - PHARYNGOLARYNGEAL DISCOMFORT [None]
  - REFUSAL OF TREATMENT BY RELATIVE [None]
  - RENAL FAILURE ACUTE [None]
  - RHABDOMYOLYSIS [None]
  - SHOCK HAEMORRHAGIC [None]
  - VENTRICULAR FIBRILLATION [None]
